FAERS Safety Report 15517913 (Version 1)
Quarter: 2018Q4

REPORT INFORMATION
  Report Type: Spontaneous
  Country: US (occurrence: US)
  Receive Date: 20181011
  Receipt Date: 20181011
  Transmission Date: 20190205
  Serious: Yes (Disabling, Other)
  Sender: FDA-Public Use
  Company Number: None

PATIENT
  Age: 34 Year
  Sex: Female
  Weight: 72.57 kg

DRUGS (6)
  1. LINZESS [Concomitant]
     Active Substance: LINACLOTIDE
  2. PROTONIX [Concomitant]
     Active Substance: PANTOPRAZOLE SODIUM
  3. BCP [Concomitant]
  4. BUPRENORPHINE /NALOXONE 8.2 SL TABS [Suspect]
     Active Substance: BUPRENORPHINE\NALOXONE
     Indication: DRUG DEPENDENCE
     Dosage: ?          QUANTITY:1.5 MG MILLIGRAM(S);?
     Route: 060
     Dates: start: 20180810, end: 20180907
  5. PREVICED 80 MG [Concomitant]
  6. IBUPROFIN [Concomitant]
     Active Substance: IBUPROFEN

REACTIONS (9)
  - Anxiety [None]
  - Vomiting [None]
  - Oral pain [None]
  - Therapy change [None]
  - Nausea [None]
  - Drug dependence [None]
  - Withdrawal syndrome [None]
  - Oral disorder [None]
  - Irritability [None]

NARRATIVE: CASE EVENT DATE: 20180907
